FAERS Safety Report 13742166 (Version 1)
Quarter: 2017Q3

REPORT INFORMATION
  Report Type: Spontaneous
  Country: US (occurrence: US)
  Receive Date: 20170711
  Receipt Date: 20170711
  Transmission Date: 20171127
  Serious: No
  Sender: FDA-Public Use
  Company Number: US-IPSEN BIOPHARMACEUTICALS, INC.-2014-5821

PATIENT
  Age: 43 Year
  Sex: Female
  Weight: 50 kg

DRUGS (4)
  1. DYSPORT [Suspect]
     Active Substance: ABOBOTULINUMTOXINA
     Indication: SKIN WRINKLING
     Dosage: 58 UNITS
     Route: 030
     Dates: start: 20141003, end: 20141003
  2. DYSPORT [Suspect]
     Active Substance: ABOBOTULINUMTOXINA
     Indication: SKIN WRINKLING
     Dosage: 58 UNITS
     Route: 065
     Dates: start: 20121210, end: 20121210
  3. DYSPORT [Suspect]
     Active Substance: ABOBOTULINUMTOXINA
     Indication: SKIN WRINKLING
     Dosage: 58 UNITS
     Route: 065
     Dates: start: 20130928, end: 20130928
  4. DYSPORT [Suspect]
     Active Substance: ABOBOTULINUMTOXINA
     Indication: PRODUCT USE IN UNAPPROVED INDICATION

REACTIONS (12)
  - Peripheral swelling [Recovering/Resolving]
  - Musculoskeletal stiffness [Recovering/Resolving]
  - Overdose [Unknown]
  - White blood cell count abnormal [Recovering/Resolving]
  - Gait disturbance [Recovering/Resolving]
  - Influenza like illness [None]
  - Fatigue [Recovering/Resolving]
  - Dry mouth [None]
  - Feeling hot [None]
  - Rash [None]
  - Inflammatory marker increased [Recovering/Resolving]
  - Joint swelling [Recovering/Resolving]

NARRATIVE: CASE EVENT DATE: 20141016
